FAERS Safety Report 15598300 (Version 1)
Quarter: 2018Q4

REPORT INFORMATION
  Report Type: Spontaneous
  Country: US (occurrence: US)
  Receive Date: 20181108
  Receipt Date: 20181108
  Transmission Date: 20190205
  Serious: Yes (Other)
  Sender: FDA-Public Use
  Company Number: US-SA-2016SA037208

PATIENT
  Age: 63 Year
  Sex: Female

DRUGS (5)
  1. PREDNISONE. [Concomitant]
     Active Substance: PREDNISONE
     Dosage: DOSE: 10 MG AND 2.5 MG DAILY
     Dates: start: 20130922
  2. AZATHIOPRINE. [Concomitant]
     Active Substance: AZATHIOPRINE
  3. MESTINON [Concomitant]
     Active Substance: PYRIDOSTIGMINE BROMIDE
  4. LANTUS SOLOSTAR [Suspect]
     Active Substance: INSULIN GLARGINE
     Indication: TYPE 2 DIABETES MELLITUS
     Dosage: 60 DF,QD
     Route: 058
     Dates: start: 20130922
  5. INSULIN ASPART [Suspect]
     Active Substance: INSULIN ASPART
     Indication: TYPE 2 DIABETES MELLITUS
     Dosage: DOSE: 18 UNITS PREBREAKFAST, AND 22 UNITS PRE LUNCH
     Route: 058
     Dates: start: 20130922

REACTIONS (6)
  - Blood potassium decreased [Not Recovered/Not Resolved]
  - Injection site bruising [Unknown]
  - Plasmapheresis [Unknown]
  - Injection site haemorrhage [Unknown]
  - Blood glucose increased [Recovering/Resolving]
  - Glycosylated haemoglobin increased [Unknown]

NARRATIVE: CASE EVENT DATE: 2013
